FAERS Safety Report 5430179-4 (Version None)
Quarter: 2007Q3

REPORT INFORMATION
  Report Type: 
  Country: None (occurrence: None)
  Receive Date: 20070731
  Receipt Date: 20070510
  Transmission Date: 20080115
  Serious: No
  Sender: FDA-Public Use
  Company Number: US200705003154

PATIENT
  Sex: Female

DRUGS (5)
  1. BYETTA [Suspect]
     Indication: TYPE 2 DIABETES MELLITUS
     Dosage: 5 UG, DAILY (1/D), SUBCUTANEOUS
     Route: 058
     Dates: start: 20070401
  2. METFORMIN HCL [Concomitant]
  3. GLIPIZIDE [Concomitant]
  4. ACEON [Concomitant]
  5. RANITIDINE [Concomitant]

REACTIONS (6)
  - BLOOD GLUCOSE DECREASED [None]
  - DIARRHOEA [None]
  - HUNGER [None]
  - NAUSEA [None]
  - TREMOR [None]
  - VOMITING [None]
